FAERS Safety Report 8076698-6 (Version None)
Quarter: 2012Q1

REPORT INFORMATION
  Report Type: 
  Country: None (occurrence: None)
  Receive Date: 20120125
  Receipt Date: 20120125
  Transmission Date: 20120608
  Serious: No
  Sender: FDA-Public Use
  Company Number: None

PATIENT

DRUGS (2)
  1. NOVORAPID [Suspect]
  2. NOVOMIX [Suspect]

REACTIONS (2)
  - PRODUCT LABEL CONFUSION [None]
  - DRUG DISPENSING ERROR [None]
